FAERS Safety Report 19043478 (Version 2)
Quarter: 2021Q2

REPORT INFORMATION
  Report Type: Spontaneous
  Country: JP (occurrence: JP)
  Receive Date: 20210322
  Receipt Date: 20210401
  Transmission Date: 20210717
  Serious: Yes (Other)
  Sender: FDA-Public Use
  Company Number: JP-JNJFOC-20201235370

PATIENT
  Age: 59 Year
  Sex: Female

DRUGS (9)
  1. ADCIRCA [Suspect]
     Active Substance: TADALAFIL
     Indication: PULMONARY ARTERIAL HYPERTENSION
     Route: 048
     Dates: start: 20210114, end: 20210210
  2. TRIAZOLAM. [Suspect]
     Active Substance: TRIAZOLAM
     Indication: PRODUCT USED FOR UNKNOWN INDICATION
     Dosage: DOSE UNKNOWN
     Route: 048
     Dates: start: 2020
  3. LAC?B [Concomitant]
     Active Substance: BIFIDOBACTERIUM SPP.
     Indication: ABDOMINAL DISCOMFORT
     Dosage: DOSE UNKNOWN
     Route: 048
  4. ALLOID G [Concomitant]
     Active Substance: SODIUM ALGINATE
     Dosage: DOSE UNKNOWN
     Route: 048
  5. REVATIO [Suspect]
     Active Substance: SILDENAFIL CITRATE
     Indication: PULMONARY ARTERIAL HYPERTENSION
     Route: 048
     Dates: start: 202005, end: 20210113
  6. OPSUMIT [Suspect]
     Active Substance: MACITENTAN
     Indication: PULMONARY ARTERIAL HYPERTENSION
     Dosage: DOSE UNKNOWN
     Route: 048
     Dates: start: 20200212
  7. NEXIUM [Concomitant]
     Active Substance: ESOMEPRAZOLE MAGNESIUM
     Dosage: DOSE UNKNOWN
     Route: 048
  8. REVATIO [Suspect]
     Active Substance: SILDENAFIL CITRATE
     Route: 048
     Dates: start: 20210211
  9. ROZEREM [Concomitant]
     Active Substance: RAMELTEON
     Dosage: DOSE UNKNOWN
     Route: 048

REACTIONS (7)
  - Eructation [Recovering/Resolving]
  - Hypoaesthesia oral [Recovering/Resolving]
  - Nausea [Recovering/Resolving]
  - Laryngeal discomfort [Recovering/Resolving]
  - Visual acuity reduced [Not Recovered/Not Resolved]
  - Thirst [Recovering/Resolving]
  - Swollen tongue [Recovering/Resolving]

NARRATIVE: CASE EVENT DATE: 2020
